FAERS Safety Report 6274373-1 (Version None)
Quarter: 2009Q3

REPORT INFORMATION
  Report Type: 
  Country: None (occurrence: None)
  Receive Date: 20090716
  Receipt Date: 20090708
  Transmission Date: 20100115
  Serious: Yes (Hospitalization)
  Sender: FDA-Public Use
  Company Number: CAP09000161

PATIENT
  Age: 73 Year
  Sex: Female

DRUGS (3)
  1. ACTONEL [Suspect]
     Indication: HIP ARTHROPLASTY
     Dosage: 35 MG ONCE WEEKLY, ORAL
     Route: 048
     Dates: start: 20090601
  2. PREVACID [Concomitant]
  3. ATIVAN [Concomitant]

REACTIONS (2)
  - DIZZINESS POSTURAL [None]
  - LOSS OF CONSCIOUSNESS [None]
